FAERS Safety Report 5300193-8 (Version None)
Quarter: 2007Q2

REPORT INFORMATION
  Report Type: 
  Country: None (occurrence: None)
  Receive Date: 20070418
  Receipt Date: 20070409
  Transmission Date: 20071010
  Serious: Yes (Other)
  Sender: FDA-Public Use
  Company Number: HQWYE974610JUL04

PATIENT
  Sex: Female

DRUGS (4)
  1. PREMPRO [Suspect]
     Dosage: UNKNOWN
     Dates: start: 19990901, end: 20000801
  2. PROVERA [Suspect]
     Dosage: UNKNOWN
     Dates: start: 19991201, end: 20000301
  3. MEDROXYPROGESTERONE ACETATE [Suspect]
     Dosage: UNKNOWN
     Dates: start: 19991201, end: 20000301
  4. PREMARIN [Suspect]
     Dosage: UNKNOWN
     Dates: start: 19970101, end: 19970101

REACTIONS (1)
  - BREAST CANCER METASTATIC [None]
